FAERS Safety Report 4596814-8 (Version None)
Quarter: 2005Q1

REPORT INFORMATION
  Report Type: 
  Country: None (occurrence: None)
  Receive Date: 20050228
  Receipt Date: 20050215
  Transmission Date: 20050727
  Serious: Yes (Hospitalization)
  Sender: FDA-Public Use
  Company Number: 2004104699

PATIENT
  Sex: Male

DRUGS (2)
  1. NEURONTIN [Suspect]
     Indication: EPILEPSY
     Dosage: ORAL
     Route: 048
  2. GABAPENTIN [Suspect]
     Indication: ILL-DEFINED DISORDER

REACTIONS (1)
  - CIRCULATORY COLLAPSE [None]
